FAERS Safety Report 22157806 (Version 1)
Quarter: 2023Q1

REPORT INFORMATION
  Report Type: Spontaneous
  Country: AT (occurrence: AT)
  Receive Date: 20230330
  Receipt Date: 20230330
  Transmission Date: 20230418
  Serious: Yes (Other)
  Sender: FDA-Public Use
  Company Number: AT-APIL-2309146US

PATIENT
  Sex: Female

DRUGS (1)
  1. BOTULINUM TOXIN TYPE A [Suspect]
     Active Substance: BOTULINUM TOXIN TYPE A
     Indication: Obesity
     Dosage: UNK, SINGLE, INTRAGASTRIC
     Dates: start: 20230202, end: 20230202

REACTIONS (11)
  - Poisoning [Unknown]
  - Monoplegia [Unknown]
  - Pain [Unknown]
  - Somnolence [Unknown]
  - Fatigue [Unknown]
  - Visual impairment [Unknown]
  - Intentional product misuse [Unknown]
  - Off label use [Unknown]
  - Influenza like illness [Unknown]
  - Facial paralysis [Unknown]
  - Muscular weakness [Unknown]

NARRATIVE: CASE EVENT DATE: 20230201
